FAERS Safety Report 9850035 (Version 1)
Quarter: 2014Q1

REPORT INFORMATION
  Report Type: Spontaneous
  Country: US (occurrence: None)
  Receive Date: 20140124
  Receipt Date: 20140124
  Transmission Date: 20141002
  Serious: Yes (Disabling, Other)
  Sender: FDA-Public Use
  Company Number: None

PATIENT
  Sex: Female
  Weight: 74.84 kg

DRUGS (7)
  1. ANASTROZOLE [Suspect]
     Indication: BREAST CANCER
     Dosage: ONE TABLET
     Route: 048
     Dates: start: 2010, end: 201108
  2. ANASTROZOLE [Suspect]
     Indication: PROPHYLAXIS
     Dosage: ONE TABLET
     Route: 048
     Dates: start: 2010, end: 201108
  3. ATENOLOL [Concomitant]
  4. ASPIRIN [Concomitant]
  5. ATORVASTATIN [Concomitant]
  6. HYDROCHLOROTHIAZIDE [Concomitant]
  7. VITAMIN D [Concomitant]

REACTIONS (6)
  - Periorbital oedema [None]
  - Eye pruritus [None]
  - Initial insomnia [None]
  - Middle insomnia [None]
  - Eye pain [None]
  - Vision blurred [None]
